FAERS Safety Report 6641146-7 (Version None)
Quarter: 2010Q1

REPORT INFORMATION
  Report Type: 
  Country: None (occurrence: None)
  Receive Date: 20100318
  Receipt Date: 20090708
  Transmission Date: 20100710
  Serious: No
  Sender: FDA-Public Use
  Company Number: US-ASTRAZENECA-2009UW18870

PATIENT
  Age: 44 Year
  Sex: Male

DRUGS (3)
  1. LISINOPRIL [Suspect]
     Route: 048
  2. CRESTOR [Suspect]
     Route: 048
  3. INSULIN GLARGINE [Suspect]
     Indication: DIABETES MELLITUS
     Route: 058

REACTIONS (3)
  - BLOOD GLUCOSE INCREASED [None]
  - HYPERTENSION [None]
  - POOR PERIPHERAL CIRCULATION [None]
